FAERS Safety Report 8033995-8 (Version None)
Quarter: 2012Q1

REPORT INFORMATION
  Report Type: 
  Country: None (occurrence: None)
  Receive Date: 20120110
  Receipt Date: 20120105
  Transmission Date: 20120608
  Serious: Yes (Hospitalization)
  Sender: FDA-Public Use
  Company Number: US-MERCK-1106USA01028

PATIENT
  Age: 61 Year
  Sex: Female

DRUGS (7)
  1. VITAMINS (UNSPECIFIED) [Concomitant]
     Route: 065
     Dates: start: 19960101
  2. STALEVO 100 [Concomitant]
     Indication: PARKINSON'S DISEASE
     Route: 065
     Dates: start: 19960101
  3. FOSAMAX [Suspect]
     Indication: OSTEOPENIA
     Route: 048
     Dates: start: 19970601, end: 20010602
  4. FOSAMAX [Suspect]
     Route: 048
     Dates: start: 20010602, end: 20080601
  5. REQUIP [Concomitant]
     Indication: PARKINSON'S DISEASE
     Route: 065
     Dates: start: 19960101
  6. CALCIUM (UNSPECIFIED) AND VITAMIN D (UNSPECIFIED) [Concomitant]
     Route: 065
     Dates: start: 19960101
  7. FOSAMAX [Suspect]
     Route: 048
     Dates: start: 20080601, end: 20100101

REACTIONS (6)
  - FOOT FRACTURE [None]
  - ORAL DISORDER [None]
  - LOW TURNOVER OSTEOPATHY [None]
  - ANIMAL BITE [None]
  - DENTAL CARIES [None]
  - FEMUR FRACTURE [None]
